FAERS Safety Report 4938378-2 (Version None)
Quarter: 2006Q1

REPORT INFORMATION
  Report Type: 
  Country: None (occurrence: None)
  Receive Date: 20060308
  Receipt Date: 20060308
  Transmission Date: 20060701
  Serious: Yes (Hospitalization)
  Sender: FDA-Public Use
  Company Number: None

PATIENT
  Sex: Male
  Weight: 73.9363 kg

DRUGS (8)
  1. CETUXIMAB [Suspect]
     Indication: NEOPLASM MALIGNANT
     Dosage: 400MG/M2 = 860MG;  250MG/M2 = 538MG
     Dates: start: 20051228
  2. CETUXIMAB [Suspect]
     Indication: NEOPLASM MALIGNANT
     Dosage: 400MG/M2 = 860MG;  250MG/M2 = 538MG
     Dates: start: 20060104
  3. CETUXIMAB [Suspect]
     Indication: NEOPLASM MALIGNANT
     Dosage: 400MG/M2 = 860MG;  250MG/M2 = 538MG
     Dates: start: 20060111
  4. CETUXIMAB [Suspect]
     Indication: NEOPLASM MALIGNANT
     Dosage: 400MG/M2 = 860MG;  250MG/M2 = 538MG
     Dates: start: 20060118
  5. RADIATON [Concomitant]
  6. CETUXIMAB [Concomitant]
  7. TAXOL [Concomitant]
  8. CARBOPLATIN [Concomitant]

REACTIONS (6)
  - ASTHENIA [None]
  - DEHYDRATION [None]
  - DRUG ERUPTION [None]
  - FEEDING TUBE COMPLICATION [None]
  - PYREXIA [None]
  - WEIGHT DECREASED [None]
